FAERS Safety Report 6329314-5 (Version None)
Quarter: 2009Q3

REPORT INFORMATION
  Report Type: 
  Country: None (occurrence: None)
  Receive Date: 20090826
  Receipt Date: 20090812
  Transmission Date: 20100115
  Serious: Yes (Hospitalization)
  Sender: FDA-Public Use
  Company Number: FR-SOLVAY-00209003915

PATIENT
  Age: 981 Month
  Sex: Female

DRUGS (10)
  1. NEXIUM [Concomitant]
     Indication: DRUG USE FOR UNKNOWN INDICATION
     Dosage: DAILY DOSE:  UNKNOWN
     Route: 065
     Dates: start: 20090118, end: 20090518
  2. COVERSYL 2 MG [Suspect]
     Indication: DRUG USE FOR UNKNOWN INDICATION
     Dosage: DAILY DOSE: 2 MILLIGRAM(S)
     Route: 048
     Dates: start: 20090118
  3. TAHOR [Concomitant]
     Indication: DRUG USE FOR UNKNOWN INDICATION
     Dosage: DAILY DOSE:  UNKNOWN
     Route: 065
     Dates: start: 20090118, end: 20090518
  4. ACEBUTOLOL [Suspect]
     Indication: DRUG USE FOR UNKNOWN INDICATION
     Dosage: DAILY DOSE: 1 DOSAGE FORM
     Route: 048
     Dates: start: 20090118, end: 20090619
  5. KARDEGIC [Concomitant]
     Indication: THROMBOSIS PROPHYLAXIS
     Dosage: DAILY DOSE: 75 MILLIGRAM(S)
     Route: 065
     Dates: start: 20090118
  6. PLAVIX [Concomitant]
     Indication: THROMBOSIS PROPHYLAXIS
     Dosage: DAILY DOSE: 75 MILLIGRAM(S)
     Route: 065
     Dates: start: 20090118
  7. LEVOTHYROX [Concomitant]
     Indication: HYPOTHYROIDISM
     Dosage: DAILY DOSE: 87.5 MILLIGRAM(S)
     Route: 065
  8. CACIT VITAMINE D3 [Concomitant]
     Indication: VITAMIN D DEFICIENCY
     Dosage: DAILY DOSE: 1000 MILLIGRAM(S)
     Route: 065
     Dates: start: 20090201
  9. ATARAX [Concomitant]
     Indication: ANXIETY
     Dosage: DAILY DOSE: 50 MILLIGRAM(S)
     Route: 065
     Dates: start: 20090201, end: 20090518
  10. ATARAX [Concomitant]
     Dosage: DAILY DOSE: 25 MILLIGRAM(S)
     Route: 065
     Dates: start: 20090518

REACTIONS (1)
  - LUPUS-LIKE SYNDROME [None]
